FAERS Safety Report 16957856 (Version 1)
Quarter: 2019Q4

REPORT INFORMATION
  Report Type: Spontaneous
  Country: US (occurrence: US)
  Receive Date: 20191024
  Receipt Date: 20191024
  Transmission Date: 20200122
  Serious: No
  Sender: FDA-Public Use
  Company Number: US-SA-2019SA294611

PATIENT

DRUGS (1)
  1. XYZAL ALLERGY 24HR [Suspect]
     Active Substance: LEVOCETIRIZINE DIHYDROCHLORIDE
     Indication: HYPERSENSITIVITY
     Route: 065

REACTIONS (6)
  - Pruritus [Recovered/Resolved]
  - Scratch [Recovered/Resolved]
  - Rash erythematous [Recovered/Resolved]
  - Drug withdrawal syndrome [Unknown]
  - Insomnia [Recovered/Resolved]
  - Urticaria [Recovered/Resolved]
